FAERS Safety Report 7712045-4 (Version None)
Quarter: 2011Q3

REPORT INFORMATION
  Report Type: 
  Country: None (occurrence: None)
  Receive Date: 20110826
  Receipt Date: 20110823
  Transmission Date: 20111222
  Serious: Yes (Hospitalization)
  Sender: FDA-Public Use
  Company Number: ES-PFIZER INC-2011194406

PATIENT
  Age: 76 Year
  Sex: Female

DRUGS (5)
  1. ARICEPT [Concomitant]
     Indication: DEMENTIA ALZHEIMER'S TYPE
     Dosage: 10 MG, 1X/DAY
     Route: 048
  2. SEROQUEL [Concomitant]
     Indication: COGNITIVE DISORDER
     Dosage: 150 MG, 1X/DAY
     Route: 048
  3. NEURONTIN [Suspect]
     Indication: PSYCHOMOTOR HYPERACTIVITY
     Dosage: 600 MG, 1X/DAY
     Route: 048
     Dates: start: 20110520, end: 20110520
  4. TRAZODONE HCL [Suspect]
     Indication: PSYCHOMOTOR HYPERACTIVITY
     Dosage: 100 MG, 1X/DAY
     Route: 048
     Dates: start: 20110520, end: 20110520
  5. OMEPRAZOLE [Concomitant]
     Indication: PROPHYLAXIS AGAINST GASTROINTESTINAL ULCER
     Dosage: 20 MG, 1X/DAY
     Route: 048

REACTIONS (2)
  - ASPIRATION BRONCHIAL [None]
  - DEPRESSED LEVEL OF CONSCIOUSNESS [None]
